FAERS Safety Report 8403438-0 (Version None)
Quarter: 2012Q2

REPORT INFORMATION
  Report Type: 
  Country: None (occurrence: None)
  Receive Date: 20120601
  Receipt Date: 20120410
  Transmission Date: 20120825
  Serious: Yes (Hospitalization, Other)
  Sender: FDA-Public Use
  Company Number: JP-BRISTOL-MYERS SQUIBB COMPANY-16470205

PATIENT
  Age: 78 Year
  Sex: Female

DRUGS (2)
  1. ABILIFY [Suspect]
     Indication: DEMENTIA
     Route: 048
     Dates: start: 20120213
  2. SEROQUEL [Suspect]
     Route: 048
     Dates: start: 20111229, end: 20120213

REACTIONS (5)
  - FRACTURE [None]
  - DELUSION [None]
  - HALLUCINATION [None]
  - AGITATION [None]
  - BLOOD GLUCOSE INCREASED [None]
